FAERS Safety Report 5556872-0 (Version None)
Quarter: 2007Q4

REPORT INFORMATION
  Report Type: 
  Country: None (occurrence: None)
  Receive Date: 20071214
  Receipt Date: 20071204
  Transmission Date: 20080405
  Serious: Yes (Other)
  Sender: FDA-Public Use
  Company Number: PHBS2007JP20544

PATIENT
  Age: 66 Year
  Sex: Female

DRUGS (4)
  1. GLEEVEC [Suspect]
     Indication: ACUTE LYMPHOCYTIC LEUKAEMIA
     Dosage: 600MG/D
     Route: 048
     Dates: start: 20071030, end: 20071129
  2. PREDNISOLONE [Suspect]
     Dosage: 60MG/D
     Dates: start: 20071030, end: 20071130
  3. BONALON [Concomitant]
     Dosage: 5MG/D
     Route: 048
  4. GASTER [Concomitant]

REACTIONS (3)
  - BLOOD BILIRUBIN INCREASED [None]
  - HAEMOLYTIC ANAEMIA [None]
  - RETICULOCYTE COUNT INCREASED [None]
